FAERS Safety Report 4667735-7 (Version None)
Quarter: 2005Q2

REPORT INFORMATION
  Report Type: 
  Country: None (occurrence: None)
  Receive Date: 20050520
  Receipt Date: 20050506
  Transmission Date: 20051028
  Serious: Yes (Other)
  Sender: FDA-Public Use
  Company Number: US-MERCK-0505USA00893

PATIENT
  Age: 64 Year
  Sex: Female
  Weight: 54 kg

DRUGS (9)
  1. SINGULAIR [Suspect]
     Indication: ASTHMA
     Route: 048
     Dates: start: 20020101, end: 20050505
  2. ADVAIR DISKUS 100/50 [Concomitant]
     Route: 065
  3. ADVAIR DISKUS 100/50 [Concomitant]
     Route: 065
  4. ALLEGRA [Concomitant]
     Route: 065
  5. ZYRTEC [Concomitant]
     Route: 065
  6. FLONASE [Concomitant]
     Route: 065
  7. MUCINEX [Concomitant]
     Route: 065
  8. FOSAMAX [Concomitant]
     Route: 048
  9. PRAVACHOL [Concomitant]
     Route: 065

REACTIONS (2)
  - ALLERGIC GRANULOMATOUS ANGIITIS [None]
  - LOBAR PNEUMONIA [None]
